FAERS Safety Report 21299267 (Version 3)
Quarter: 2022Q4

REPORT INFORMATION
  Report Type: Spontaneous
  Country: JP (occurrence: JP)
  Receive Date: 20220906
  Receipt Date: 20221013
  Transmission Date: 20230113
  Serious: Yes (Death, Hospitalization, Other)
  Sender: FDA-Public Use
  Company Number: JP-DSJP-DSJ-2022-131944AA

PATIENT
  Age: 89 Year
  Sex: Female

DRUGS (6)
  1. EDOXABAN TOSYLATE [Suspect]
     Active Substance: EDOXABAN TOSYLATE
     Indication: Atrial fibrillation
     Dosage: 30 MG, QD, AFTER BREAKFAST
     Route: 048
  2. OLMESARTAN MEDOXOMIL [Suspect]
     Active Substance: OLMESARTAN MEDOXOMIL
     Indication: Hypertension
     Dosage: 20 MG, QD, AFTER BREAKFAST
     Route: 048
  3. PRAVASTATIN SODIUM [Suspect]
     Active Substance: PRAVASTATIN SODIUM
     Indication: Hyperlipidaemia
     Dosage: 10 MG, QD, AFTER DINNER
     Route: 048
  4. AMLODIPINE BESYLATE [Concomitant]
     Active Substance: AMLODIPINE BESYLATE
     Dosage: 5 MG, QD, AFTER BREAKFAST
     Route: 048
  5. MINODRONIC ACID [Concomitant]
     Active Substance: MINODRONIC ACID
     Dosage: 50 MG, ONCE EVERY 1 MO, AT THE TIME OF RISING
     Route: 048
  6. CALONAL [Concomitant]
     Active Substance: ACETAMINOPHEN
     Dosage: 600 MG, BID, AFTER BREAKFAST AND DINNER
     Route: 048

REACTIONS (2)
  - Cerebral haemorrhage [Fatal]
  - Embolic stroke [Fatal]

NARRATIVE: CASE EVENT DATE: 20170601
